FAERS Safety Report 7073988-0 (Version None)
Quarter: 2010Q4

REPORT INFORMATION
  Report Type: 
  Country: None (occurrence: None)
  Receive Date: 20101029
  Receipt Date: 20101021
  Transmission Date: 20110411
  Serious: Yes (Hospitalization)
  Sender: FDA-Public Use
  Company Number: GB-B.I. PHARMACEUTICALS,INC./RIDGEFIELD-2010-UK-00266UK

PATIENT
  Sex: Female

DRUGS (2)
  1. PRADAXA [Suspect]
     Indication: HIP ARTHROPLASTY
     Route: 048
  2. PRADAXA [Suspect]
     Indication: KNEE ARTHROPLASTY

REACTIONS (2)
  - DEEP VEIN THROMBOSIS [None]
  - JOINT SWELLING [None]
